FAERS Safety Report 10252597 (Version 1)
Quarter: 2014Q2

REPORT INFORMATION
  Report Type: Spontaneous
  Country: US (occurrence: None)
  Receive Date: 20140620
  Receipt Date: 20140620
  Transmission Date: 20141212
  Serious: Yes (Other)
  Sender: FDA-Public Use
  Company Number: None

PATIENT
  Age: 38 Year
  Sex: Male

DRUGS (1)
  1. PAROXETINE CR 37.5 MG TABLETS [Suspect]
     Dosage: 2 PILLS DAILY BY MOUTH
     Route: 048
     Dates: start: 20140303, end: 20140529

REACTIONS (3)
  - Paraesthesia [None]
  - Pain in extremity [None]
  - Product substitution issue [None]
